FAERS Safety Report 7531484-8 (Version None)
Quarter: 2011Q2

REPORT INFORMATION
  Report Type: 
  Country: None (occurrence: None)
  Receive Date: 20110531
  Receipt Date: 20110516
  Transmission Date: 20111010
  Serious: Yes (Hospitalization, Other)
  Sender: FDA-Public Use
  Company Number: 2011MA005987

PATIENT
  Age: 35 Year
  Sex: Female

DRUGS (1)
  1. VERAPAMIL HCL [Suspect]
     Indication: MIGRAINE
     Dosage: 4.8 G;1X;PO
     Route: 048

REACTIONS (15)
  - OVERDOSE [None]
  - RENAL FAILURE [None]
  - GRAND MAL CONVULSION [None]
  - BRADYCARDIA [None]
  - CARDIOGENIC SHOCK [None]
  - CONVULSION [None]
  - SUICIDE ATTEMPT [None]
  - ATRIOVENTRICULAR BLOCK COMPLETE [None]
  - RESPIRATORY FAILURE [None]
  - SOMNOLENCE [None]
  - VERTIGO [None]
  - PULMONARY OEDEMA [None]
  - BUNDLE BRANCH BLOCK RIGHT [None]
  - NAUSEA [None]
  - ILEUS PARALYTIC [None]
